FAERS Safety Report 26147138 (Version 1)
Quarter: 2025Q4

REPORT INFORMATION
  Report Type: Report from Study
  Country: EU (occurrence: EU)
  Receive Date: 20251211
  Receipt Date: 20251211
  Transmission Date: 20260118
  Serious: Yes (Hospitalization, Other)
  Sender: MYLAN
  Company Number: None

PATIENT
  Age: 46 Year
  Sex: Male

DRUGS (16)
  1. GABAPENTIN [Suspect]
     Active Substance: GABAPENTIN
     Indication: Product used for unknown indication
     Dosage: 12 DOSAGE FORM (12 CAPSULE 300MG)
     Dates: start: 20251101, end: 20251101
  2. GABAPENTIN [Suspect]
     Active Substance: GABAPENTIN
     Dosage: 12 DOSAGE FORM (12 CAPSULE 300MG)
     Route: 065
     Dates: start: 20251101, end: 20251101
  3. GABAPENTIN [Suspect]
     Active Substance: GABAPENTIN
     Dosage: 12 DOSAGE FORM (12 CAPSULE 300MG)
     Route: 065
     Dates: start: 20251101, end: 20251101
  4. GABAPENTIN [Suspect]
     Active Substance: GABAPENTIN
     Dosage: 12 DOSAGE FORM (12 CAPSULE 300MG)
     Dates: start: 20251101, end: 20251101
  5. MIRTAZAPINE [Suspect]
     Active Substance: MIRTAZAPINE
     Indication: Product used for unknown indication
     Dosage: 3 DOSAGE FORM (3 TABLETS 100 MG)
     Dates: start: 20251101, end: 20251101
  6. MIRTAZAPINE [Suspect]
     Active Substance: MIRTAZAPINE
     Dosage: 3 DOSAGE FORM (3 TABLETS 100 MG)
     Route: 065
     Dates: start: 20251101, end: 20251101
  7. MIRTAZAPINE [Suspect]
     Active Substance: MIRTAZAPINE
     Dosage: 3 DOSAGE FORM (3 TABLETS 100 MG)
     Route: 065
     Dates: start: 20251101, end: 20251101
  8. MIRTAZAPINE [Suspect]
     Active Substance: MIRTAZAPINE
     Dosage: 3 DOSAGE FORM (3 TABLETS 100 MG)
     Dates: start: 20251101, end: 20251101
  9. ACETAMINOPHEN [Suspect]
     Active Substance: ACETAMINOPHEN
     Indication: Product used for unknown indication
     Dosage: UNK
     Dates: start: 20251101, end: 20251101
  10. ACETAMINOPHEN [Suspect]
     Active Substance: ACETAMINOPHEN
     Dosage: UNK
     Route: 065
     Dates: start: 20251101, end: 20251101
  11. ACETAMINOPHEN [Suspect]
     Active Substance: ACETAMINOPHEN
     Dosage: UNK
     Route: 065
     Dates: start: 20251101, end: 20251101
  12. ACETAMINOPHEN [Suspect]
     Active Substance: ACETAMINOPHEN
     Dosage: UNK
     Dates: start: 20251101, end: 20251101
  13. SODIUM OXYBATE [Suspect]
     Active Substance: SODIUM OXYBATE
     Indication: Product used for unknown indication
     Dosage: UNK
     Dates: start: 20251101, end: 20251101
  14. SODIUM OXYBATE [Suspect]
     Active Substance: SODIUM OXYBATE
     Dosage: UNK
     Route: 048
     Dates: start: 20251101, end: 20251101
  15. SODIUM OXYBATE [Suspect]
     Active Substance: SODIUM OXYBATE
     Dosage: UNK
     Route: 048
     Dates: start: 20251101, end: 20251101
  16. SODIUM OXYBATE [Suspect]
     Active Substance: SODIUM OXYBATE
     Dosage: UNK
     Dates: start: 20251101, end: 20251101

REACTIONS (2)
  - Intentional self-injury [Unknown]
  - Drug abuse [Unknown]

NARRATIVE: CASE EVENT DATE: 20251101
